FAERS Safety Report 4599120-0 (Version None)
Quarter: 2005Q1

REPORT INFORMATION
  Report Type: 
  Country: None (occurrence: None)
  Receive Date: 20050302
  Receipt Date: 20050221
  Transmission Date: 20050727
  Serious: Yes (Hospitalization)
  Sender: FDA-Public Use
  Company Number: 2004-12-1232

PATIENT
  Age: 61 Year
  Sex: Female
  Weight: 50 kg

DRUGS (6)
  1. PEG-INTRON [Suspect]
     Indication: HEPATITIS C
     Dosage: 80-40 MCG QW* SUBCUTANEOUS
     Route: 058
     Dates: start: 20041209, end: 20041223
  2. URSO 250 [Concomitant]
  3. AMLODIPINE BESYLATE [Concomitant]
  4. ALOSENN GRANULES [Concomitant]
  5. CYANOCOBALAMIN [Concomitant]
  6. HALCION [Concomitant]

REACTIONS (12)
  - AURICULAR SWELLING [None]
  - BLOOD ALBUMIN DECREASED [None]
  - DIZZINESS [None]
  - HAEMATOCRIT DECREASED [None]
  - HERPES ZOSTER OTICUS [None]
  - INFECTION IN AN IMMUNOCOMPROMISED HOST [None]
  - INFLAMMATION [None]
  - INNER EAR DISORDER [None]
  - NERVOUSNESS [None]
  - PLATELET COUNT DECREASED [None]
  - VESTIBULAR DISORDER [None]
  - WHITE BLOOD CELL COUNT DECREASED [None]
